FAERS Safety Report 24354085 (Version 2)
Quarter: 2024Q3

REPORT INFORMATION
  Report Type: Spontaneous
  Country: AU (occurrence: AU)
  Receive Date: 20240923
  Receipt Date: 20240925
  Transmission Date: 20241017
  Serious: Yes (Disabling)
  Sender: PFIZER
  Company Number: AU-MLMSERVICE-20240912-PI187999-00119-5

PATIENT
  Age: 55 Year
  Sex: Male

DRUGS (16)
  1. DIAZEPAM [Suspect]
     Active Substance: DIAZEPAM
     Indication: Anxiety
     Dosage: LONG TERM/ AT NIGHT
     Route: 048
     Dates: start: 2018
  2. TEMAZEPAM [Suspect]
     Active Substance: TEMAZEPAM
     Indication: Insomnia
     Dosage: 10 MG AS REQUIRED
     Dates: start: 2022, end: 2023
  3. TEMAZEPAM [Suspect]
     Active Substance: TEMAZEPAM
     Dosage: AT NIGHT
     Dates: start: 2022, end: 2023
  4. TELMISARTAN [Concomitant]
     Active Substance: TELMISARTAN
     Indication: Hypertension
     Dosage: LONG TERM/ IN THE MORNING
     Route: 048
     Dates: start: 2018, end: 2023
  5. ACETAMINOPHEN [Concomitant]
     Active Substance: ACETAMINOPHEN
     Indication: Pain
     Dosage: 1.33 G, AS NEEDED (MODIFIED RELEASE/LONG TERM)
     Route: 048
     Dates: start: 2018
  6. QUETIAPINE [Concomitant]
     Active Substance: QUETIAPINE
     Indication: Bipolar disorder
     Dosage: 50 MG, 1X/DAY (MODIFIED RELEASE/LONG TERM AT NIGHT)
     Route: 048
     Dates: start: 2018
  7. TIOTROPIUM [Concomitant]
     Active Substance: TIOTROPIUM
     Indication: Chronic obstructive pulmonary disease
     Dosage: 2.5 UG, 1X/DAY IN THE MORNING
     Route: 055
     Dates: start: 2018
  8. INSULIN GLARGINE [Concomitant]
     Active Substance: INSULIN GLARGINE
     Indication: Type 2 diabetes mellitus
     Dosage: 30 IU, 1X/DAY LONG TERM  IN THE EVENING
     Route: 058
     Dates: start: 2018, end: 2023
  9. DAPAGLIFLOZIN [Concomitant]
     Active Substance: DAPAGLIFLOZIN
     Indication: Type 2 diabetes mellitus
     Dosage: 10 MG, 1X/DAY IN THE MORNING
     Route: 048
     Dates: start: 2018, end: 2023
  10. ALBUTEROL [Concomitant]
     Active Substance: ALBUTEROL
     Indication: Chronic obstructive pulmonary disease
     Dosage: 200 MICROGRAMS INHALED UP TO 4 TIMES DAILY AS REQUIRED
     Route: 055
     Dates: start: 2018
  11. ATORVASTATIN [Concomitant]
     Active Substance: ATORVASTATIN
     Indication: Hypercholesterolaemia
     Dosage: 80 MG, 1X/DAY (LONG TERM/AT NIGHT)
     Route: 048
     Dates: start: 2018
  12. LEVOTHYROXINE [Concomitant]
     Active Substance: LEVOTHYROXINE\LEVOTHYROXINE SODIUM
     Indication: Thyroid hormone replacement therapy
     Dosage: 100 MICROGRAMS DAILY MONDAY TO FRIDAY, AND 150 MICROGRAMS DAILY SATURDAY AND SUNDAY
     Dates: start: 2018
  13. BUDESONIDE\FORMOTEROL [Concomitant]
     Active Substance: BUDESONIDE\FORMOTEROL
     Indication: Chronic obstructive pulmonary disease
     Dosage: 1 DF, 2X/DAY
     Route: 055
     Dates: start: 2018
  14. FENOFIBRATE [Concomitant]
     Active Substance: FENOFIBRATE
     Indication: Hypercholesterolaemia
     Dosage: 145 MG, 1X/DAY (LONG TERM/IN THE MORNING)
     Route: 048
     Dates: start: 2018
  15. BENSERAZIDE\LEVODOPA [Concomitant]
     Active Substance: BENSERAZIDE\LEVODOPA
     Indication: Parkinsonism
     Dosage: 1 DF, 3X/DAY
     Route: 048
     Dates: start: 2020, end: 2023
  16. LINAGLIPTIN\METFORMIN HYDROCHLORIDE [Concomitant]
     Active Substance: LINAGLIPTIN\METFORMIN HYDROCHLORIDE
     Indication: Type 2 diabetes mellitus
     Dosage: LINAGLIPTIN+METFORMIN 2.5 MG+1 G ORALLY TWICE DAILY
     Route: 048
     Dates: start: 2018

REACTIONS (2)
  - Fall [Unknown]
  - Mobility decreased [Unknown]

NARRATIVE: CASE EVENT DATE: 20200101
